FAERS Safety Report 7938126-8 (Version None)
Quarter: 2011Q4

REPORT INFORMATION
  Report Type: 
  Country: None (occurrence: None)
  Receive Date: 20111123
  Receipt Date: 20110808
  Transmission Date: 20120403
  Serious: No
  Sender: FDA-Public Use
  Company Number: US-BRISTOL-MYERS SQUIBB COMPANY-15952518

PATIENT
  Age: 70 Year
  Sex: Male
  Weight: 111 kg

DRUGS (1)
  1. ONGLYZA [Suspect]
     Dates: start: 20110805

REACTIONS (6)
  - SOMNOLENCE [None]
  - LETHARGY [None]
  - CONFUSIONAL STATE [None]
  - INSOMNIA [None]
  - MEDICATION ERROR [None]
  - AGITATION [None]
